FAERS Safety Report 25929146 (Version 1)
Quarter: 2025Q4

REPORT INFORMATION
  Report Type: Spontaneous
  Country: US (occurrence: US)
  Receive Date: 20251016
  Receipt Date: 20251016
  Transmission Date: 20260117
  Serious: Yes (Life-Threatening, Hospitalization, Other)
  Sender: MICRO LABS LIMITED
  Company Number: US-MICRO LABS LIMITED-ML2025-05274

PATIENT
  Age: 68 Year
  Sex: Male

DRUGS (4)
  1. SIMVASTATIN [Suspect]
     Active Substance: SIMVASTATIN
     Indication: Lipid management
     Dosage: TOTAL DAILY DOSE OF 60 MG(20MG+ 40 MG) [DOSE HAD RECENTLY BEEN INCREASED FROM 20 TO 40 MG A LITTLE O
  2. SIMVASTATIN [Suspect]
     Active Substance: SIMVASTATIN
     Dosage: HIS PREVIOUS SIMVASTATIN PRESCRIPTION (20 MG)
  3. SIMVASTATIN [Suspect]
     Active Substance: SIMVASTATIN
     Dosage: SIMVASTATIN PRESCRIPTION WAS LOWERED BACK TO 20 MG DAILY,
  4. LISINOPRIL [Suspect]
     Active Substance: LISINOPRIL
     Indication: Product used for unknown indication

REACTIONS (4)
  - Drug interaction [Unknown]
  - Angioedema [Recovered/Resolved]
  - Accidental overdose [Unknown]
  - Wrong dose [Unknown]
